FAERS Safety Report 7120566-0 (Version None)
Quarter: 2010Q4

REPORT INFORMATION
  Report Type: 
  Country: None (occurrence: None)
  Receive Date: 20101115
  Receipt Date: 20101101
  Transmission Date: 20110411
  Serious: Yes (Other)
  Sender: FDA-Public Use
  Company Number: 011709

PATIENT
  Sex: Male

DRUGS (2)
  1. BUSULFEX [Suspect]
     Indication: CORD BLOOD TRANSPLANT THERAPY
  2. ATG (ANTILYMPHOCYTE IMMUNOGLOBULIN (HORSE) [Concomitant]

REACTIONS (4)
  - CYTOMEGALOVIRUS INFECTION [None]
  - SUBDURAL HAEMORRHAGE [None]
  - VENOOCCLUSIVE DISEASE [None]
  - VIRAEMIA [None]
